FAERS Safety Report 21145539 (Version 1)
Quarter: 2022Q3

REPORT INFORMATION
  Report Type: Spontaneous
  Country: US (occurrence: US)
  Receive Date: 20220729
  Receipt Date: 20220729
  Transmission Date: 20221027
  Serious: Yes (Death)
  Sender: FDA-Public Use
  Company Number: ENDG22-04478

PATIENT
  Age: 58 Year
  Sex: Male

DRUGS (1)
  1. BOSENTAN [Suspect]
     Active Substance: BOSENTAN
     Indication: Pulmonary arterial hypertension
     Dosage: 125 MG, BID
     Route: 048
     Dates: start: 20190613, end: 2022

REACTIONS (1)
  - Death [Fatal]

NARRATIVE: CASE EVENT DATE: 20220625
